FAERS Safety Report 5263266-4 (Version None)
Quarter: 2007Q1

REPORT INFORMATION
  Report Type: 
  Country: None (occurrence: None)
  Receive Date: 20070312
  Receipt Date: 20070226
  Transmission Date: 20070707
  Serious: Yes (Hospitalization, Other)
  Sender: FDA-Public Use
  Company Number: US-ELI_LILLY_AND_COMPANY-US200702005494

PATIENT
  Age: 5 Year
  Sex: Male

DRUGS (2)
  1. STRATTERA [Suspect]
     Dosage: 10 MG, UNKNOWN
     Route: 048
  2. RISPERDAL [Concomitant]
     Dosage: UNK, UNKNOWN
     Route: 065

REACTIONS (1)
  - HYDRONEPHROSIS [None]
